FAERS Safety Report 10656773 (Version 1)
Quarter: 2014Q4

REPORT INFORMATION
  Report Type: Spontaneous
  Country: US (occurrence: US)
  Receive Date: 20141217
  Receipt Date: 20141217
  Transmission Date: 20150529
  Serious: Yes (Other)
  Sender: FDA-Public Use
  Company Number: US-BEH-2014047126

PATIENT
  Sex: Male

DRUGS (6)
  1. CETIRIZINE [Concomitant]
     Active Substance: CETIRIZINE HYDROCHLORIDE
  2. SUMATRIPTAN. [Concomitant]
     Active Substance: SUMATRIPTAN
  3. CARIMUNE [Suspect]
     Active Substance: HUMAN IMMUNOGLOBULIN G
  4. SULFASALAZINE. [Concomitant]
     Active Substance: SULFASALAZINE
  5. PREDNISONE. [Concomitant]
     Active Substance: PREDNISONE
  6. HIZENTRA [Suspect]
     Active Substance: HUMAN IMMUNOGLOBULIN G

REACTIONS (11)
  - Injection site pain [Unknown]
  - Unevaluable event [Unknown]
  - Infection [Unknown]
  - Fatigue [Unknown]
  - Blood immunoglobulin A decreased [Unknown]
  - Migraine [Unknown]
  - Anger [Unknown]
  - Tremor [Unknown]
  - Dyspnoea [Unknown]
  - Injection site swelling [Unknown]
  - Muscle spasms [Unknown]
